FAERS Safety Report 13985530 (Version 1)
Quarter: 2017Q3

REPORT INFORMATION
  Report Type: Spontaneous
  Country: US (occurrence: US)
  Receive Date: 20170918
  Receipt Date: 20170918
  Transmission Date: 20171128
  Serious: Yes (Other)
  Sender: FDA-Public Use
  Company Number: None

PATIENT
  Age: 21 Month
  Sex: Male
  Weight: 13.5 kg

DRUGS (2)
  1. PEDIA-LAX [Suspect]
     Active Substance: SODIUM PHOSPHATE, DIBASIC, HEPTAHYDRATE\SODIUM PHOSPHATE, MONOBASIC
     Indication: CONSTIPATION
     Dosage: ?          OTHER FREQUENCY:ONE TIME;?
     Route: 048
     Dates: start: 20170904, end: 20170904
  2. PEDIA-LAX [Suspect]
     Active Substance: SODIUM PHOSPHATE, DIBASIC, HEPTAHYDRATE\SODIUM PHOSPHATE, MONOBASIC
     Indication: FAECES HARD
     Dosage: ?          OTHER FREQUENCY:ONE TIME;?
     Route: 048
     Dates: start: 20170904, end: 20170904

REACTIONS (6)
  - Wrong technique in product usage process [None]
  - Erythema [None]
  - Product label issue [None]
  - Dyspnoea [None]
  - Foreign body aspiration [None]
  - Irritability [None]

NARRATIVE: CASE EVENT DATE: 20170904
